FAERS Safety Report 8146346-5 (Version None)
Quarter: 2012Q1

REPORT INFORMATION
  Report Type: 
  Country: None (occurrence: None)
  Receive Date: 20120217
  Receipt Date: 20120203
  Transmission Date: 20120608
  Serious: Yes (Hospitalization, Disabling, Other)
  Sender: FDA-Public Use
  Company Number: DE-BAUSCH-2012BL000887

PATIENT
  Age: 28 Year
  Sex: Female

DRUGS (2)
  1. DEXAMETHASONE [Suspect]
     Route: 047
     Dates: start: 20080101
  2. DEXAMETHASONE [Suspect]
     Indication: ANTIINFLAMMATORY THERAPY
     Route: 047
     Dates: start: 20080101

REACTIONS (5)
  - GLAUCOMA [None]
  - CORNEAL DISORDER [None]
  - OPTIC NERVE DISORDER [None]
  - BLINDNESS UNILATERAL [None]
  - INCORRECT DRUG ADMINISTRATION DURATION [None]
